FAERS Safety Report 6986607-6 (Version None)
Quarter: 2010Q3

REPORT INFORMATION
  Report Type: 
  Country: None (occurrence: None)
  Receive Date: 20100827
  Receipt Date: 20100628
  Transmission Date: 20110219
  Serious: Yes (Hospitalization)
  Sender: FDA-Public Use
  Company Number: AMAG201000285

PATIENT
  Age: 77 Year
  Sex: Female
  Weight: 87.1 kg

DRUGS (10)
  1. FERAHEME [Suspect]
     Indication: IRON DEFICIENCY ANAEMIA
     Dosage: 510 MG, SINGLE
     Dates: start: 20100621, end: 20100621
  2. FERAHEME [Suspect]
     Indication: RENAL FAILURE CHRONIC
     Dosage: 510 MG, SINGLE
     Dates: start: 20100621, end: 20100621
  3. DIGOXIN [Concomitant]
  4. DILITAZEM (DILITAZEM HYDROCHLORIDE) [Concomitant]
  5. FUROSEMIDE [Concomitant]
  6. LANTUS [Concomitant]
  7. METOLAZONE [Concomitant]
  8. POTASSIUM CHLORIDE [Concomitant]
  9. WARFARIN SODIUM [Concomitant]
  10. FOLIC ACID [Concomitant]

REACTIONS (8)
  - CHEST DISCOMFORT [None]
  - DYSPNOEA [None]
  - HYPERHIDROSIS [None]
  - HYPERSENSITIVITY [None]
  - NAUSEA [None]
  - OXYGEN SATURATION DECREASED [None]
  - PYREXIA [None]
  - WHEEZING [None]
